FAERS Safety Report 17186211 (Version 1)
Quarter: 2019Q4

REPORT INFORMATION
  Report Type: Spontaneous
  Country: AU (occurrence: AU)
  Receive Date: 20191220
  Receipt Date: 20191220
  Transmission Date: 20200122
  Serious: Yes (Other)
  Sender: FDA-Public Use
  Company Number: AU-OTSUKA-2019_042368

PATIENT
  Sex: Male

DRUGS (1)
  1. ABILIFY MAINTENA [Suspect]
     Active Substance: ARIPIPRAZOLE
     Indication: SCHIZOPHRENIA
     Dosage: 100 MG, QM
     Route: 030

REACTIONS (4)
  - Schizophrenia [Unknown]
  - Prescribed underdose [Unknown]
  - Catatonia [Unknown]
  - Product administered to patient of inappropriate age [Unknown]
